FAERS Safety Report 5120463-6 (Version None)
Quarter: 2006Q4

REPORT INFORMATION
  Report Type: 
  Country: None (occurrence: None)
  Receive Date: 20061002
  Receipt Date: 20060925
  Transmission Date: 20070319
  Serious: Yes (Hospitalization, Other)
  Sender: FDA-Public Use
  Company Number: FR200608002283

PATIENT
  Age: 24 Year
  Sex: Male
  Weight: 105 kg

DRUGS (5)
  1. ZYPREXA [Suspect]
     Indication: SCHIZOPHRENIA
     Dosage: ORAL
     Route: 048
     Dates: start: 20050701, end: 20060810
  2. SINGULAIR [Concomitant]
  3. SEREVENT [Concomitant]
  4. SERETIDE (FLUTICASONE PROPIONATE, SALMETEROL) [Concomitant]
  5. PRAZEPAM [Concomitant]

REACTIONS (5)
  - ASTHMATIC CRISIS [None]
  - HYPERGLYCAEMIA [None]
  - KETOACIDOSIS [None]
  - LACTIC ACIDOSIS [None]
  - WEIGHT INCREASED [None]
